FAERS Safety Report 19021618 (Version 1)
Quarter: 2021Q1

REPORT INFORMATION
  Report Type: Report from Study
  Country: None (occurrence: US)
  Receive Date: 20210318
  Receipt Date: 20210318
  Transmission Date: 20210420
  Serious: Yes (Hospitalization)
  Sender: FDA-Public Use
  Company Number: US-ABBVIE-21K-163-3788703-00

PATIENT
  Age: 33 Year
  Sex: Female

DRUGS (4)
  1. HUMIRA [Suspect]
     Active Substance: ADALIMUMAB
     Indication: PSORIATIC ARTHROPATHY
     Route: 058
     Dates: start: 2019
  2. HUMIRA [Suspect]
     Active Substance: ADALIMUMAB
     Indication: HIDRADENITIS
     Dosage: DAY 1
     Route: 058
     Dates: start: 20210223, end: 20210223
  3. HUMIRA [Suspect]
     Active Substance: ADALIMUMAB
     Route: 058
     Dates: start: 20210225, end: 202103
  4. CELEBREX [Concomitant]
     Active Substance: CELECOXIB
     Indication: PRODUCT USED FOR UNKNOWN INDICATION

REACTIONS (19)
  - Arthralgia [Unknown]
  - Loss of personal independence in daily activities [Unknown]
  - Kidney infection [Unknown]
  - Musculoskeletal stiffness [Unknown]
  - Swelling [Unknown]
  - Injection site pruritus [Unknown]
  - Fatigue [Unknown]
  - Peripheral swelling [Unknown]
  - Pain in extremity [Unknown]
  - Dehydration [Unknown]
  - Back pain [Unknown]
  - Impaired self-care [Unknown]
  - Pain [Unknown]
  - Joint swelling [Unknown]
  - Joint stiffness [Unknown]
  - Gait disturbance [Unknown]
  - Hidradenitis [Unknown]
  - Hypotension [Not Recovered/Not Resolved]
  - Hyperhidrosis [Unknown]

NARRATIVE: CASE EVENT DATE: 20210228
